FAERS Safety Report 5339493-4 (Version None)
Quarter: 2007Q2

REPORT INFORMATION
  Report Type: 
  Country: None (occurrence: None)
  Receive Date: 20070525
  Receipt Date: 20070521
  Transmission Date: 20071010
  Serious: Yes (Life-Threatening)
  Sender: FDA-Public Use
  Company Number: 2007-158955-NL

PATIENT
  Age: 35 Year
  Sex: Female

DRUGS (13)
  1. MIRTAZAPINE [Suspect]
     Dosage: 15 MG ORAL
     Route: 048
     Dates: start: 20070424, end: 20070502
  2. VENLAFAXIINE HCL [Suspect]
     Dosage: SEE IMAGE
     Route: 048
     Dates: start: 20070412, end: 20070416
  3. VENLAFAXIINE HCL [Suspect]
     Dosage: SEE IMAGE
     Route: 048
     Dates: start: 20070417, end: 20070419
  4. VENLAFAXIINE HCL [Suspect]
     Dosage: SEE IMAGE
     Route: 048
     Dates: start: 20070420, end: 20070427
  5. VENLAFAXIINE HCL [Suspect]
     Dosage: SEE IMAGE
     Route: 048
     Dates: start: 20070428, end: 20070503
  6. VENLAFAXIINE HCL [Suspect]
     Dosage: SEE IMAGE
     Route: 048
     Dates: start: 20070504
  7. LORAZEPAM [Suspect]
     Dosage: SEE IMAGE
     Route: 048
     Dates: start: 20070320, end: 20070403
  8. LORAZEPAM [Suspect]
     Dosage: SEE IMAGE
     Route: 048
     Dates: start: 20070410, end: 20070419
  9. LORAZEPAM [Suspect]
     Dosage: SEE IMAGE
     Route: 048
     Dates: start: 20070420, end: 20070424
  10. LORAZEPAM [Suspect]
     Dosage: SEE IMAGE
     Route: 048
     Dates: start: 20070424, end: 20070426
  11. LORAZEPAM [Suspect]
     Dosage: SEE IMAGE
     Route: 048
     Dates: start: 20070430, end: 20070501
  12. LORAZEPAM [Suspect]
     Dosage: SEE IMAGE
     Route: 048
     Dates: start: 20070502
  13. OLANZAPINE [Suspect]
     Dosage: 5 MG
     Dates: start: 20070427

REACTIONS (2)
  - HYPOMANIA [None]
  - SUICIDE ATTEMPT [None]
